FAERS Safety Report 4435627-4 (Version None)
Quarter: 2004Q3

REPORT INFORMATION
  Report Type: 
  Country: None (occurrence: None)
  Receive Date: 20040726
  Receipt Date: 20040510
  Transmission Date: 20050211
  Serious: No
  Sender: FDA-Public Use
  Company Number: USA040567059

PATIENT
  Age: 63 Year
  Sex: Female
  Weight: 52 kg

DRUGS (13)
  1. FORTEO [Suspect]
     Indication: OSTEOPOROSIS
     Dosage: 20 UG/1 DAY
     Dates: start: 20040401
  2. HYDROXYUREA [Concomitant]
  3. B100 [Concomitant]
  4. GLUCOSAMINE SULFATE [Concomitant]
  5. CALCIUM [Concomitant]
  6. NEURONTIN [Concomitant]
  7. TORSEMIDE [Concomitant]
  8. ZAROXOLYN [Concomitant]
  9. POTASSIUM [Concomitant]
  10. MAGNESIUM [Concomitant]
  11. XANAX [Concomitant]
  12. VITAMIN B6 [Concomitant]
  13. VITAMIN E [Concomitant]

REACTIONS (5)
  - CHAPPED LIPS [None]
  - DIZZINESS POSTURAL [None]
  - NASAL DISCOMFORT [None]
  - RASH [None]
  - RASH PAPULAR [None]
